FAERS Safety Report 15252924 (Version 2)
Quarter: 2018Q3

REPORT INFORMATION
  Report Type: Spontaneous
  Country: US (occurrence: US)
  Receive Date: 20180807
  Receipt Date: 20180907
  Transmission Date: 20181010
  Serious: Yes (Other)
  Sender: FDA-Public Use
  Company Number: US-BAYER-2018-141214

PATIENT
  Sex: Female

DRUGS (1)
  1. A AND D ORIGINAL [Suspect]
     Active Substance: LANOLIN\PETROLATUM
     Indication: THERAPEUTIC SKIN CARE TOPICAL
     Dosage: 1?2 DF
     Route: 061
     Dates: start: 20180723, end: 20180726

REACTIONS (3)
  - Erythema [Unknown]
  - Application site burn [Unknown]
  - Drug eruption [Unknown]

NARRATIVE: CASE EVENT DATE: 20180724
